FAERS Safety Report 4622842-X (Version None)
Quarter: 2005Q1

REPORT INFORMATION
  Report Type: 
  Country: None (occurrence: None)
  Receive Date: 20050330
  Receipt Date: 20050317
  Transmission Date: 20050727
  Serious: Yes (Other)
  Sender: FDA-Public Use
  Company Number: US-GLAXOSMITHKLINE-A0550491A

PATIENT
  Sex: Female

DRUGS (3)
  1. LITHIUM CARBONATE [Suspect]
  2. LAMICTAL [Suspect]
     Indication: DRUG USE FOR UNKNOWN INDICATION
     Route: 048
  3. UNSPECIFIED MEDICATION [Suspect]

REACTIONS (2)
  - MULTIPLE DRUG OVERDOSE [None]
  - OVERDOSE [None]
